FAERS Safety Report 21726505 (Version 1)
Quarter: 2022Q4

REPORT INFORMATION
  Report Type: Report from Study
  Country: US (occurrence: US)
  Receive Date: 20221214
  Receipt Date: 20221214
  Transmission Date: 20230112
  Serious: No
  Sender: FDA-Public Use
  Company Number: US-ABBVIE-4198322

PATIENT
  Sex: Male

DRUGS (1)
  1. HUMIRA [Suspect]
     Active Substance: ADALIMUMAB
     Indication: Rheumatoid arthritis
     Dosage: EVENTS ONSET : NOV 2022
     Route: 058
     Dates: start: 20221104

REACTIONS (2)
  - Pruritus [Not Recovered/Not Resolved]
  - Renal disorder [Not Recovered/Not Resolved]
